FAERS Safety Report 12359387 (Version 1)
Quarter: 2016Q2

REPORT INFORMATION
  Report Type: Spontaneous
  Country: US (occurrence: None)
  Receive Date: 20160511
  Receipt Date: 20160511
  Transmission Date: 20160815
  Serious: Yes (Death)
  Sender: FDA-Public Use
  Company Number: None

PATIENT
  Age: 6 Week
  Sex: Male
  Weight: 2.16 kg

DRUGS (9)
  1. FERROUS GLUCONATE [Concomitant]
     Active Substance: FERROUS GLUCONATE
  2. NEVIRAPINE. [Suspect]
     Active Substance: NEVIRAPINE
     Indication: PROPHYLAXIS AGAINST HIV INFECTION
     Route: 048
     Dates: start: 20150723, end: 20150905
  3. HEPATITIS B [Concomitant]
     Active Substance: HUMAN HEPATITIS B VIRUS IMMUNE GLOBULIN
  4. BACTRIM [Concomitant]
     Active Substance: SULFAMETHOXAZOLE\TRIMETHOPRIM
  5. HEXAXIM (DTAP-IPV HIB 1) [Concomitant]
  6. MULTIVITAMIN [Concomitant]
     Active Substance: VITAMINS
  7. PRAVNAR [Concomitant]
  8. POLIOMYELITIS VACCINE NOS [Concomitant]
     Active Substance: POLIOMYELITIS VACCINE
  9. KOTU VIRUS [Concomitant]

REACTIONS (11)
  - Eye discharge [None]
  - Body temperature decreased [None]
  - Somnolence [None]
  - Respiratory rate increased [None]
  - Lymphadenopathy [None]
  - Respiratory tract infection [None]
  - Heart rate increased [None]
  - Dehydration [None]
  - Sudden infant death syndrome [None]
  - Hypophagia [None]
  - Oral candidiasis [None]

NARRATIVE: CASE EVENT DATE: 20150906
